FAERS Safety Report 8221057-6 (Version None)
Quarter: 2012Q1

REPORT INFORMATION
  Report Type: 
  Country: None (occurrence: None)
  Receive Date: 20120320
  Receipt Date: 20120307
  Transmission Date: 20120608
  Serious: Yes (Other)
  Sender: FDA-Public Use
  Company Number: JP-ELI_LILLY_AND_COMPANY-JP201203002470

PATIENT
  Age: 60 Year
  Sex: Male

DRUGS (3)
  1. ALIMTA [Suspect]
     Indication: LUNG NEOPLASM MALIGNANT
     Route: 042
  2. PARAPLATIN AQ [Concomitant]
     Indication: LUNG NEOPLASM MALIGNANT
     Route: 042
  3. BEVACIZUMAB [Concomitant]
     Indication: LUNG NEOPLASM MALIGNANT
     Route: 042

REACTIONS (1)
  - SMALL INTESTINAL PERFORATION [None]
